FAERS Safety Report 11839594 (Version 1)
Quarter: 2015Q4

REPORT INFORMATION
  Report Type: Spontaneous
  Country: IL (occurrence: None)
  Receive Date: 20151215
  Receipt Date: 20151215
  Transmission Date: 20160305
  Serious: Yes (Death)
  Sender: FDA-Public Use
  Company Number: None

PATIENT
  Age: 69 Year
  Sex: Female
  Weight: 82 kg

DRUGS (3)
  1. DAKLINZA [Suspect]
     Active Substance: DACLATASVIR
     Indication: CHRONIC HEPATITIS C
     Dosage: 1 PILL 1 QD
     Dates: start: 20151109, end: 20151115
  2. SOVALDI [Suspect]
     Active Substance: SOFOSBUVIR
     Indication: CHRONIC HEPATITIS C
     Dosage: 1 PILL  1 QD
     Route: 048
     Dates: start: 20151109, end: 20151115
  3. URSOLIT [Concomitant]

REACTIONS (10)
  - Abdominal pain upper [None]
  - Nausea [None]
  - General physical health deterioration [None]
  - Hepatic cirrhosis [None]
  - Diarrhoea [None]
  - Hypotension [None]
  - Colitis [None]
  - Cognitive disorder [None]
  - Ascites [None]
  - Vomiting [None]

NARRATIVE: CASE EVENT DATE: 20151115
